FAERS Safety Report 24466043 (Version 1)
Quarter: 2024Q4

REPORT INFORMATION
  Report Type: Spontaneous
  Country: US (occurrence: US)
  Receive Date: 20241018
  Receipt Date: 20241018
  Transmission Date: 20250114
  Serious: No
  Sender: ABBVIE
  Company Number: US-ABBVIE-5959516

PATIENT
  Sex: Male

DRUGS (1)
  1. HUMIRA [Suspect]
     Active Substance: ADALIMUMAB
     Indication: Psoriatic arthropathy
     Route: 058

REACTIONS (6)
  - Memory impairment [Unknown]
  - Injection site haemorrhage [Unknown]
  - Arthralgia [Unknown]
  - Brain fog [Unknown]
  - Injection site paraesthesia [Unknown]
  - Paranoia [Unknown]
